FAERS Safety Report 9581470 (Version 1)
Quarter: 2013Q4

REPORT INFORMATION
  Report Type: Spontaneous
  Country: US (occurrence: US)
  Receive Date: 20131002
  Receipt Date: 20131002
  Transmission Date: 20140711
  Serious: Yes (Other)
  Sender: FDA-Public Use
  Company Number: PHEH2013US020343

PATIENT
  Sex: Male

DRUGS (10)
  1. LOTREL [Suspect]
     Dosage: 75 MG, TID
     Route: 048
  2. PLAVIX [Concomitant]
     Dosage: 75 MG, QD
     Route: 048
  3. LASIX [Concomitant]
     Dosage: 40 MG, QD
     Route: 048
  4. METOPROLOL [Concomitant]
     Dosage: 25 MG, QD
     Route: 048
  5. PHENERGAN                          /00404701/ [Concomitant]
     Dosage: 25 MG, QD
     Route: 048
  6. WARFARIN [Concomitant]
     Dosage: 5 MG, QD
     Route: 048
  7. PRAVASTATIN [Concomitant]
     Dosage: 40 MG, QHS
  8. NITROSTAT [Concomitant]
     Dosage: 0.4 MG, UNK
     Route: 060
  9. VENTOLIN HFA [Concomitant]
     Dosage: 90 UG, UNK
  10. DIAZEPAM [Concomitant]
     Dosage: 10 MG, UNK
     Route: 048

REACTIONS (27)
  - Type 2 diabetes mellitus [Unknown]
  - Diabetic neuropathy [Unknown]
  - Crohn^s disease [Unknown]
  - Fibromyalgia [Unknown]
  - Disability [Unknown]
  - Myocardial infarction [Unknown]
  - Chest pain [Unknown]
  - Blood pressure increased [Unknown]
  - Drug hypersensitivity [Unknown]
  - Gastrooesophageal reflux disease [Unknown]
  - Dyspepsia [Unknown]
  - Burning sensation [Unknown]
  - Wheezing [Unknown]
  - Back disorder [Unknown]
  - Hyperlipidaemia [Unknown]
  - Hypokinesia [Unknown]
  - Cerumen impaction [Unknown]
  - Joint swelling [Unknown]
  - Back pain [Unknown]
  - Fatigue [Unknown]
  - Arthralgia [Unknown]
  - Hypoaesthesia [Unknown]
  - Paraesthesia [Unknown]
  - Muscle spasms [Unknown]
  - Pain [Unknown]
  - Hypertension [Unknown]
  - Pollakiuria [Unknown]
